FAERS Safety Report 12428854 (Version 1)
Quarter: 2016Q2

REPORT INFORMATION
  Report Type: Spontaneous
  Country: US (occurrence: US)
  Receive Date: 20160602
  Receipt Date: 20160602
  Transmission Date: 20160815
  Serious: No
  Sender: FDA-Public Use
  Company Number: US-BAYER-2016-107489

PATIENT
  Age: 75 Year
  Sex: Female
  Weight: 68.27 kg

DRUGS (2)
  1. SIMVASTATIN. [Concomitant]
     Active Substance: SIMVASTATIN
  2. ALEVE [Suspect]
     Active Substance: NAPROXEN SODIUM
     Indication: ANALGESIC THERAPY
     Dosage: 2 DF, PRN
     Route: 048

REACTIONS (2)
  - Product use issue [None]
  - Blood pressure increased [None]

NARRATIVE: CASE EVENT DATE: 2015
